FAERS Safety Report 18433479 (Version 4)
Quarter: 2021Q4

REPORT INFORMATION
  Report Type: Spontaneous
  Country: JP (occurrence: JP)
  Receive Date: 20201027
  Receipt Date: 20211216
  Transmission Date: 20220303
  Serious: Yes (Hospitalization, Other)
  Sender: FDA-Public Use
  Company Number: JP-SANOFI-2019SA205181

PATIENT
  Age: 10 Year
  Sex: Female
  Weight: 27.2 kg

DRUGS (30)
  1. SABRIL [Suspect]
     Active Substance: VIGABATRIN
     Indication: Infantile spasms
     Dosage: 350 MG, BID
     Route: 048
     Dates: start: 20181101, end: 20181118
  2. SABRIL [Suspect]
     Active Substance: VIGABATRIN
     Dosage: 700 MG, BID
     Route: 048
     Dates: start: 20181119, end: 20190303
  3. SABRIL [Suspect]
     Active Substance: VIGABATRIN
     Dosage: 850 MG, BID
     Route: 048
     Dates: start: 20190304, end: 20190306
  4. SABRIL [Suspect]
     Active Substance: VIGABATRIN
     Dosage: 700 MG, BID
     Route: 048
     Dates: start: 20190307, end: 20190313
  5. SABRIL [Suspect]
     Active Substance: VIGABATRIN
     Dosage: 500 MG, BID
     Route: 048
     Dates: start: 20190314, end: 20190324
  6. SABRIL [Suspect]
     Active Substance: VIGABATRIN
     Dosage: 250 MG, BID
     Route: 048
     Dates: start: 20190325, end: 20190328
  7. SABRIL [Suspect]
     Active Substance: VIGABATRIN
     Dosage: 400 MG, BID
     Route: 048
     Dates: start: 20191225, end: 20200120
  8. SABRIL [Suspect]
     Active Substance: VIGABATRIN
     Dosage: 500 MG, BID
     Route: 048
     Dates: start: 20200121, end: 20200503
  9. SABRIL [Suspect]
     Active Substance: VIGABATRIN
     Dosage: 625 MG, BID
     Route: 048
     Dates: start: 20200504, end: 20200713
  10. SABRIL [Suspect]
     Active Substance: VIGABATRIN
     Dosage: 750 MG, BID
     Route: 048
     Dates: start: 20200714, end: 20201014
  11. SABRIL [Suspect]
     Active Substance: VIGABATRIN
     Dosage: 1000 MG, BID
     Route: 048
     Dates: start: 20201015, end: 20201116
  12. SABRIL [Suspect]
     Active Substance: VIGABATRIN
     Dosage: 750 MG, BID
     Route: 048
     Dates: start: 20201117, end: 20201217
  13. SABRIL [Suspect]
     Active Substance: VIGABATRIN
     Dosage: 500 MG, BID
     Route: 048
     Dates: start: 20201218, end: 20211025
  14. SABRIL [Suspect]
     Active Substance: VIGABATRIN
     Dosage: 250 MG, BID
     Route: 048
     Dates: start: 20211026
  15. VALPROATE SODIUM [Concomitant]
     Active Substance: VALPROATE SODIUM
     Indication: Infantile spasms
     Dosage: DAILY DOSE: 500 MG
     Route: 048
     Dates: end: 20190313
  16. VALPROATE SODIUM [Concomitant]
     Active Substance: VALPROATE SODIUM
     Dosage: DAILY DOSE: 600 MG
     Route: 048
     Dates: start: 20190314, end: 20190407
  17. VALPROATE SODIUM [Concomitant]
     Active Substance: VALPROATE SODIUM
     Dosage: DAILY DOSE: 700 MG
     Route: 048
     Dates: start: 20190408
  18. RIVOTRIL [Concomitant]
     Active Substance: CLONAZEPAM
     Indication: Infantile spasms
     Dosage: DAILY DOSE: 0.75 MG
     Route: 048
  19. INOVELON [Concomitant]
     Active Substance: RUFINAMIDE
     Indication: Infantile spasms
     Dosage: DAILY DOSE: 600 MG
     Route: 048
     Dates: end: 20190403
  20. INOVELON [Concomitant]
     Active Substance: RUFINAMIDE
     Dosage: DAILY DOSE 400 MG
     Route: 048
     Dates: start: 20190802
  21. FYCOMPA [Concomitant]
     Active Substance: PERAMPANEL
     Indication: Infantile spasms
     Dosage: DAILY DOSE: 2 MG
     Route: 048
     Dates: end: 20190121
  22. FYCOMPA [Concomitant]
     Active Substance: PERAMPANEL
     Dosage: DAILY DOSE: 3 MG
     Route: 048
     Dates: start: 20190122, end: 20190403
  23. FYCOMPA [Concomitant]
     Active Substance: PERAMPANEL
     Dosage: DAILY DOSE: 1 MG
     Route: 048
     Dates: start: 20191021, end: 20211026
  24. ABILIFY [Concomitant]
     Active Substance: ARIPIPRAZOLE
     Indication: Product used for unknown indication
     Dosage: DAILY DOSE: 2 MG
     Route: 048
     Dates: end: 20190607
  25. MAGNESIUM OXIDE [Concomitant]
     Active Substance: MAGNESIUM OXIDE
     Indication: Product used for unknown indication
     Dosage: DAILY DOSE: 660 MG
     Route: 048
     Dates: end: 20200414
  26. PRANLUKAST [Concomitant]
     Active Substance: PRANLUKAST
     Indication: Product used for unknown indication
     Dosage: DAILY DOSE: 260MG
     Route: 065
  27. AMITIZA [Concomitant]
     Active Substance: LUBIPROSTONE
     Indication: Product used for unknown indication
     Dosage: DAILY DOSE: 24 UG
     Route: 048
     Dates: start: 20200415, end: 20201014
  28. AMITIZA [Concomitant]
     Active Substance: LUBIPROSTONE
     Dosage: DAILY DOSE: 48 UG
     Route: 048
     Dates: start: 20201015, end: 20210427
  29. HERBALS [Concomitant]
     Active Substance: HERBALS
     Indication: Product used for unknown indication
     Dosage: DAILY DOSE: 7.5 G
     Route: 048
     Dates: start: 20190514, end: 20200413
  30. HERBALS [Concomitant]
     Active Substance: HERBALS
     Dosage: DAILY DOSE: 3 G
     Route: 048
     Dates: start: 20200414

REACTIONS (6)
  - White blood cell count increased [Recovered/Resolved]
  - Seizure cluster [Recovering/Resolving]
  - Seizure cluster [Recovering/Resolving]
  - Seizure cluster [Recovering/Resolving]
  - Hypochromic anaemia [Recovering/Resolving]
  - Drug ineffective [Unknown]

NARRATIVE: CASE EVENT DATE: 20190222
